FAERS Safety Report 5315724-1 (Version None)
Quarter: 2007Q2

REPORT INFORMATION
  Report Type: 
  Country: None (occurrence: None)
  Receive Date: 20070503
  Receipt Date: 20070423
  Transmission Date: 20071010
  Serious: Yes (Other)
  Sender: FDA-Public Use
  Company Number: HQWYE967909JUL04

PATIENT
  Sex: Female
  Weight: 90.8 kg

DRUGS (2)
  1. PREMPRO [Suspect]
     Indication: HORMONE REPLACEMENT THERAPY
     Dosage: UNKNOWN
     Dates: start: 19920101, end: 20030101
  2. PREMARIN [Suspect]
     Indication: OESTROGEN REPLACEMENT THERAPY
     Dosage: UNKNOWN
     Dates: start: 19910101, end: 19920101

REACTIONS (5)
  - CERVIX CARCINOMA [None]
  - ENDOMETRIAL CANCER [None]
  - ENDOMETRIOSIS [None]
  - MYOCARDIAL INFARCTION [None]
  - OVARIAN CANCER [None]
